FAERS Safety Report 10466917 (Version 1)
Quarter: 2014Q3

REPORT INFORMATION
  Report Type: Spontaneous
  Country: US (occurrence: US)
  Receive Date: 20140922
  Receipt Date: 20140922
  Transmission Date: 20150326
  Serious: Yes (Hospitalization, Other)
  Sender: FDA-Public Use
  Company Number: US-BAYER-2014-138395

PATIENT
  Sex: Male

DRUGS (1)
  1. NAPROXEN SODIUM ({= 220 MG) [Suspect]
     Active Substance: NAPROXEN SODIUM
     Indication: ROAD TRAFFIC ACCIDENT
     Dosage: UNK

REACTIONS (9)
  - Aphasia [Recovered/Resolved]
  - Chronic hepatic failure [None]
  - Mobility decreased [None]
  - Memory impairment [None]
  - Petechiae [None]
  - Gastrointestinal haemorrhage [None]
  - Gastric ulcer [None]
  - Blood disorder [None]
  - Local swelling [None]
